FAERS Safety Report 8619398-3 (Version None)
Quarter: 2012Q3

REPORT INFORMATION
  Report Type: 
  Country: None (occurrence: None)
  Receive Date: 20120824
  Receipt Date: 20120810
  Transmission Date: 20120928
  Serious: Yes (Other)
  Sender: FDA-Public Use
  Company Number: JP-VERTEX PHARMACEUTICAL INC.-AE-2012-005213

PATIENT
  Age: 51 Year
  Sex: Male

DRUGS (30)
  1. REBETOL [Suspect]
     Indication: HEPATITIS C
     Dosage: 1000 MG, QD
     Route: 048
     Dates: start: 20120124, end: 20120215
  2. PEG-INTRON [Suspect]
     Indication: HEPATITIS C
     Dosage: 1.5 A?G/KG, UNK
     Route: 058
     Dates: start: 20120124, end: 20120412
  3. URSODIOL [Suspect]
     Indication: HEPATITIS C
     Dosage: 900 MG, QD
     Route: 048
     Dates: start: 20101005, end: 20120307
  4. YOUCOBAL                           /00091803/ [Concomitant]
     Dosage: 0.5 MG, QD
     Route: 048
     Dates: end: 20120208
  5. DEPAS [Concomitant]
     Dosage: 0.5 MG, QD
     Route: 048
  6. OMEPRAZOLE [Concomitant]
     Dosage: 20 MG, QD
     Route: 048
     Dates: end: 20120208
  7. CALBLOCK [Concomitant]
     Dosage: 16 MG, QD
     Route: 048
     Dates: end: 20120315
  8. CANDESARTAN CILEXETIL [Concomitant]
     Dosage: 8 MG, QD
     Route: 048
     Dates: end: 20120216
  9. HYALEIN [Concomitant]
     Route: 031
     Dates: start: 20120412
  10. REBETOL [Suspect]
     Dosage: 200 MG, QD
     Route: 048
     Dates: start: 20120223, end: 20120314
  11. REBETOL [Suspect]
     Dosage: 400 MG, QD
     Route: 048
     Dates: start: 20120315, end: 20120523
  12. ALLOPURINOL [Concomitant]
     Dosage: 200 MG, QD
     Route: 048
     Dates: start: 20120330
  13. PEG-INTRON [Suspect]
     Dosage: 1 A?G/KG, UNK
     Dates: start: 20120517, end: 20120705
  14. HALCION [Concomitant]
     Dosage: 0.25 MG, QD
     Route: 048
     Dates: end: 20120130
  15. CANDESARTAN CILEXETIL [Concomitant]
     Dosage: 2 MG, QD
     Dates: start: 20120217, end: 20120315
  16. ALLOPURINOL [Concomitant]
     Dosage: UNK
     Route: 048
     Dates: end: 20120308
  17. BIO-THREE [Concomitant]
     Dosage: 4 DF, QD
     Route: 048
     Dates: start: 20120124, end: 20120208
  18. FLOMOX [Concomitant]
     Dosage: 300 MG, QD
     Route: 048
     Dates: start: 20120404, end: 20120408
  19. RABEPRAZOLE SODIUM [Concomitant]
     Dosage: 10 MG, QD
     Route: 048
     Dates: start: 20120209
  20. PEG-INTRON [Suspect]
     Dosage: 0.75 A?G/KG, UNK
     Route: 058
     Dates: start: 20120413, end: 20120510
  21. ROHYPNOL [Concomitant]
     Dosage: 4 MG, QD
     Route: 048
  22. LENDORMIN [Concomitant]
     Dosage: 0.25 MG, QD
     Route: 048
     Dates: start: 20120127
  23. URSODIOL [Suspect]
     Indication: HEPATITIS C
     Dosage: 2250 MG, QD
     Route: 048
     Dates: start: 20120124, end: 20120328
  24. URSODIOL [Suspect]
     Dosage: 1500 MG, QD
     Route: 048
     Dates: start: 20120329, end: 20120405
  25. REBETOL [Suspect]
     Dosage: 400 MG, QD
     Route: 048
     Dates: start: 20120216, end: 20120222
  26. REBETOL [Suspect]
     Dosage: 600 MG, QD
     Route: 048
     Dates: start: 20120524, end: 20120711
  27. POLARAMINE [Concomitant]
     Dosage: 4 MG, QD
     Dates: start: 20120308
  28. NEOPHAGEN C [Concomitant]
     Dosage: 4 DF, QD
     Route: 048
     Dates: end: 20120207
  29. LIVOSTIN [Concomitant]
     Route: 031
     Dates: start: 20120412
  30. ADENOSINE [Concomitant]
     Dosage: 40 MG, QD
     Route: 048
     Dates: end: 20120208

REACTIONS (2)
  - RASH [None]
  - RETINAL HAEMORRHAGE [None]
